FAERS Safety Report 21708662 (Version 8)
Quarter: 2023Q2

REPORT INFORMATION
  Report Type: Report from Study
  Country: US (occurrence: US)
  Receive Date: 20221210
  Receipt Date: 20230627
  Transmission Date: 20230721
  Serious: No
  Sender: FDA-Public Use
  Company Number: US-002147023-NVSC2022US285612

PATIENT
  Age: 68 Year
  Sex: Female

DRUGS (1)
  1. LEQVIO [Suspect]
     Active Substance: INCLISIRAN SODIUM
     Indication: Product used for unknown indication
     Dosage: UNK
     Route: 058
     Dates: start: 20221028

REACTIONS (8)
  - Bladder discomfort [Recovering/Resolving]
  - Weight increased [Unknown]
  - Constipation [Unknown]
  - Nausea [Recovering/Resolving]
  - Swelling [Unknown]
  - COVID-19 [Unknown]
  - Blood cholesterol decreased [Unknown]
  - Urinary tract infection [Unknown]

NARRATIVE: CASE EVENT DATE: 20221028
